FAERS Safety Report 20066470 (Version 2)
Quarter: 2021Q4

REPORT INFORMATION
  Report Type: Spontaneous
  Country: US (occurrence: US)
  Receive Date: 20211115
  Receipt Date: 20211207
  Transmission Date: 20220304
  Serious: No
  Sender: FDA-Public Use
  Company Number: US-Ipsen Biopharmaceuticals, Inc.-2021-27383

PATIENT
  Age: 58 Year
  Sex: Female
  Weight: 89 kg

DRUGS (5)
  1. DYSPORT [Suspect]
     Active Substance: ABOBOTULINUMTOXINA
     Indication: Skin wrinkling
     Dosage: TOTAL UNITS 85IU:GLABELLAR LINES-10UNITS5 INJECTION POINT EACH, FOREHEAD-20UNITS,OTHER-5UNITS3 PARTS
     Route: 030
     Dates: start: 20210831, end: 20210831
  2. DYSPORT [Suspect]
     Active Substance: ABOBOTULINUMTOXINA
     Indication: Skin wrinkling
  3. DYSPORT [Suspect]
     Active Substance: ABOBOTULINUMTOXINA
     Indication: Skin wrinkling
  4. DYSPORT [Suspect]
     Active Substance: ABOBOTULINUMTOXINA
     Indication: Off label use
  5. XEOMIN [Concomitant]
     Active Substance: INCOBOTULINUMTOXINA
     Dosage: DOSE NOT REPORTED
     Route: 065

REACTIONS (3)
  - Therapeutic response shortened [Unknown]
  - Off label use [Unknown]
  - Off label use [Unknown]

NARRATIVE: CASE EVENT DATE: 20210831
